FAERS Safety Report 12678288 (Version 1)
Quarter: 2016Q3

REPORT INFORMATION
  Report Type: Spontaneous
  Country: GB (occurrence: GB)
  Receive Date: 20160823
  Receipt Date: 20160823
  Transmission Date: 20161109
  Serious: Yes (Hospitalization)
  Sender: FDA-Public Use
  Company Number: GB-MYLANLABS-2016M1034263

PATIENT

DRUGS (13)
  1. BISOPROLOL [Concomitant]
     Active Substance: BISOPROLOL
     Dosage: 2.5 MG, QD
  2. ASPIRIN                            /00002701/ [Suspect]
     Active Substance: ASPIRIN
     Dosage: 75 MG, QD
     Dates: start: 20160322
  3. AMIODARONE [Concomitant]
     Active Substance: AMIODARONE
     Dosage: 100 MG, QD
  4. RANOLAZINE [Concomitant]
     Active Substance: RANOLAZINE
     Dosage: 500 MG, BID
  5. SERETIDE [Concomitant]
     Active Substance: FLUTICASONE PROPIONATE\SALMETEROL XINAFOATE
     Dosage: 1 DF, BID (PUFF.)
     Route: 055
  6. SIMVASTATIN. [Concomitant]
     Active Substance: SIMVASTATIN
     Dosage: 20 MG, QD
  7. GLYCERYL TRINITRATE [Concomitant]
     Active Substance: NITROGLYCERIN
     Dosage: UNK (AS NEEDED.)
  8. LANSOPRAZOLE. [Concomitant]
     Active Substance: LANSOPRAZOLE
     Dosage: 30 MG, QD
  9. WARFARIN [Suspect]
     Active Substance: WARFARIN
     Dosage: UNK (AS DIRECTED BY DOCTOR.)
  10. LEVOTHYROXINE. [Concomitant]
     Active Substance: LEVOTHYROXINE
     Dosage: 50 ?G, QD
  11. CLOPIDOGREL [Suspect]
     Active Substance: CLOPIDOGREL BISULFATE
     Dosage: 75 MG, QD
  12. ISOSORBIDE MONONITRATE. [Concomitant]
     Active Substance: ISOSORBIDE MONONITRATE
     Dosage: 120 MG, QD
  13. SALBUTAMOL [Concomitant]
     Active Substance: ALBUTEROL
     Dosage: 2 DF, TID (PUFF.)

REACTIONS (8)
  - Duodenitis [Unknown]
  - Dizziness [Unknown]
  - Haemoglobin decreased [Unknown]
  - Melaena [Recovering/Resolving]
  - Hyperhidrosis [Unknown]
  - Malaise [Unknown]
  - Gastrointestinal haemorrhage [Unknown]
  - Microcytic anaemia [Unknown]

NARRATIVE: CASE EVENT DATE: 201603
